FAERS Safety Report 4617937-0 (Version None)
Quarter: 2005Q1

REPORT INFORMATION
  Report Type: 
  Country: None (occurrence: None)
  Receive Date: 20050322
  Receipt Date: 20050310
  Transmission Date: 20050727
  Serious: Yes (Death, Hospitalization)
  Sender: FDA-Public Use
  Company Number: 062-20785-05030501

PATIENT
  Age: 71 Year
  Sex: Male

DRUGS (1)
  1. THALIDOMIDE - PHARMION (THALIDOMIDE) (CAPSULES) [Suspect]
     Indication: PLASMACYTOMA
     Dosage: 100 MG, DAILY, ORAL
     Route: 048
     Dates: start: 20050201

REACTIONS (2)
  - LUMBAR VERTEBRAL FRACTURE [None]
  - PULMONARY EMBOLISM [None]
